FAERS Safety Report 24816962 (Version 1)
Quarter: 2025Q1

REPORT INFORMATION
  Report Type: Other
  Country: GA (occurrence: GA)
  Receive Date: 20250108
  Receipt Date: 20250108
  Transmission Date: 20250409
  Serious: Yes (Other)
  Sender: WOODWARD PHARMA SERVICES
  Company Number: GA-WW-2024-02221

PATIENT
  Age: 29 Year
  Sex: Female

DRUGS (1)
  1. FLUCONAZOLE [Suspect]
     Active Substance: FLUCONAZOLE
     Indication: Cryptococcal meningoencephalitis
     Route: 048

REACTIONS (1)
  - Drug ineffective [Not Recovered/Not Resolved]
